FAERS Safety Report 7053366-0 (Version None)
Quarter: 2010Q4

REPORT INFORMATION
  Report Type: 
  Country: None (occurrence: None)
  Receive Date: 20101020
  Receipt Date: 20100107
  Transmission Date: 20110411
  Serious: No
  Sender: FDA-Public Use
  Company Number: DE-SANOFI-AVENTIS-2010SA001402

PATIENT
  Age: 18 Year
  Sex: Female
  Weight: 100 kg

DRUGS (2)
  1. ARAVA [Suspect]
     Indication: RHEUMATOID ARTHRITIS
     Route: 048
     Dates: start: 20091006, end: 20091013
  2. ENBREL [Suspect]
     Indication: RHEUMATOID ARTHRITIS
     Route: 058
     Dates: start: 20090721, end: 20091120

REACTIONS (1)
  - DRUG EXPOSURE BEFORE PREGNANCY [None]
